FAERS Safety Report 8287394-4 (Version None)
Quarter: 2012Q2

REPORT INFORMATION
  Report Type: 
  Country: None (occurrence: None)
  Receive Date: 20120416
  Receipt Date: 20120402
  Transmission Date: 20120825
  Serious: Yes (Hospitalization)
  Sender: FDA-Public Use
  Company Number: JP-PFIZER INC-2012070822

PATIENT
  Age: 95 Year
  Sex: Male

DRUGS (4)
  1. WARFARIN [Suspect]
     Dosage: UNK
  2. LIPITOR [Suspect]
     Dosage: UNK
     Route: 048
  3. LANSOPRAZOLE [Suspect]
     Dosage: UNK
  4. PLAVIX [Suspect]
     Dosage: UNK

REACTIONS (1)
  - JAUNDICE [None]
